FAERS Safety Report 7892342-2 (Version None)
Quarter: 2011Q4

REPORT INFORMATION
  Report Type: 
  Country: None (occurrence: None)
  Receive Date: 20111103
  Receipt Date: 20111103
  Transmission Date: 20120403
  Serious: Yes (Hospitalization)
  Sender: FDA-Public Use
  Company Number: None

PATIENT
  Age: 80 Year
  Sex: Male
  Weight: 75 kg

DRUGS (13)
  1. LASIX [Concomitant]
  2. COREG [Concomitant]
  3. AZITHROMYCIN [Concomitant]
  4. WARFARIN SODIUM [Concomitant]
  5. SPIRONOLACTONE [Concomitant]
  6. IPRA/ALBUTEROL [Concomitant]
  7. OMEPRAZOLE [Concomitant]
  8. ENALAPRIL MALEATE [Concomitant]
  9. DRONEDARONE HCL [Concomitant]
  10. NITROGLYCERIN [Concomitant]
  11. DIGOXIN [Suspect]
     Indication: ATRIAL FIBRILLATION
     Dosage: 0.25MG DAILY ORAL CHRONIC
     Route: 048
  12. DIGOXIN [Suspect]
     Indication: CARDIAC FAILURE CONGESTIVE
     Dosage: 0.25MG DAILY ORAL CHRONIC
     Route: 048
  13. CEFPODOXIME PROXETIL [Concomitant]

REACTIONS (1)
  - TOXICITY TO VARIOUS AGENTS [None]
